FAERS Safety Report 5860479-5 (Version None)
Quarter: 2008Q3

REPORT INFORMATION
  Report Type: 
  Country: None (occurrence: None)
  Receive Date: 20080827
  Receipt Date: 20080122
  Transmission Date: 20090109
  Serious: No
  Sender: FDA-Public Use
  Company Number: US-ABBOTT-07P-163-0418225-00

PATIENT
  Sex: Female
  Weight: 58.112 kg

DRUGS (4)
  1. COATED PDS [Suspect]
     Indication: BLOOD CHOLESTEROL INCREASED
     Route: 048
     Dates: start: 20070910, end: 20070924
  2. LEVOTHYROXINE SODIUM [Concomitant]
     Indication: HYPOTHYROIDISM
     Route: 048
  3. LO-TROL [Concomitant]
     Indication: HYPERTENSION
     Route: 048
  4. HYDROCHLOROTHIAZIDE [Concomitant]
     Indication: HYPERTENSION
     Route: 048

REACTIONS (6)
  - CHILLS [None]
  - FEELING HOT [None]
  - FLUSHING [None]
  - HYPERHIDROSIS [None]
  - HYPOAESTHESIA [None]
  - PRURITUS [None]
